FAERS Safety Report 7075409-0 (Version None)
Quarter: 2010Q4

REPORT INFORMATION
  Report Type: 
  Country: None (occurrence: None)
  Receive Date: 20101030
  Receipt Date: 20100920
  Transmission Date: 20110411
  Serious: No
  Sender: FDA-Public Use
  Company Number: US-WYE-H17621210

PATIENT
  Sex: Female
  Weight: 72.64 kg

DRUGS (11)
  1. PRISTIQ [Suspect]
     Indication: DEPRESSION
     Route: 048
     Dates: start: 20100828
  2. FERROUS SULFATE [Concomitant]
  3. CELEBREX [Concomitant]
  4. HYDROCHLOROTHIAZIDE [Concomitant]
  5. FLUOXETINE [Concomitant]
  6. LISINOPRIL [Concomitant]
  7. PREMARIN [Concomitant]
  8. PRILOSEC [Concomitant]
  9. SIMVASTATIN [Concomitant]
  10. NORTRIPTYLINE [Concomitant]
  11. METOPROLOL [Concomitant]

REACTIONS (2)
  - CRYING [None]
  - DEPRESSION [None]
